FAERS Safety Report 18668559 (Version 1)
Quarter: 2020Q4

REPORT INFORMATION
  Report Type: Spontaneous
  Country: MY (occurrence: MY)
  Receive Date: 20201228
  Receipt Date: 20201228
  Transmission Date: 20210114
  Serious: Yes (Other)
  Sender: FDA-Public Use
  Company Number: MY-VIFOR (INTERNATIONAL) INC.-VIT-2020-12443

PATIENT
  Age: 75 Year
  Sex: Female

DRUGS (1)
  1. MIRCERA [Suspect]
     Active Substance: METHOXY POLYETHYLENE GLYCOL-EPOETIN BETA
     Indication: NEPHROGENIC ANAEMIA
     Dosage: SOLUTION FOR INJECTION IN PRE FILLED SYRINGE, 50MCG/0.3ML
     Route: 058

REACTIONS (3)
  - Rash maculo-papular [Recovered/Resolved]
  - Swollen tongue [Recovered/Resolved]
  - Rash [Recovered/Resolved]
